FAERS Safety Report 24332037 (Version 3)
Quarter: 2025Q3

REPORT INFORMATION
  Report Type: Spontaneous
  Country: EU (occurrence: EU)
  Receive Date: 20240918
  Receipt Date: 20250902
  Transmission Date: 20251021
  Serious: Yes (Other)
  Sender: MYLAN
  Company Number: EU-GRUNENTHAL-2024-124634

PATIENT
  Age: 50 Year
  Sex: Female

DRUGS (60)
  1. VENLAFAXINE [Suspect]
     Active Substance: VENLAFAXINE HYDROCHLORIDE
     Indication: Migraine prophylaxis
  2. VENLAFAXINE [Suspect]
     Active Substance: VENLAFAXINE HYDROCHLORIDE
     Route: 048
  3. VENLAFAXINE [Suspect]
     Active Substance: VENLAFAXINE HYDROCHLORIDE
     Route: 048
  4. VENLAFAXINE [Suspect]
     Active Substance: VENLAFAXINE HYDROCHLORIDE
  5. MOTILIUM [Suspect]
     Active Substance: DOMPERIDONE
     Indication: Migraine
  6. MOTILIUM [Suspect]
     Active Substance: DOMPERIDONE
     Route: 065
  7. MOTILIUM [Suspect]
     Active Substance: DOMPERIDONE
     Route: 065
  8. MOTILIUM [Suspect]
     Active Substance: DOMPERIDONE
  9. MIRTAZAPINE [Suspect]
     Active Substance: MIRTAZAPINE
     Indication: Affective disorder
     Dosage: 15 MILLIGRAM, QD (15 MILLIGRAM, 1/DAY)
     Dates: start: 2016
  10. MIRTAZAPINE [Suspect]
     Active Substance: MIRTAZAPINE
     Indication: Sleep disorder
     Dosage: 15 MILLIGRAM, QD (15 MILLIGRAM, 1/DAY)
     Route: 065
     Dates: start: 2016
  11. MIRTAZAPINE [Suspect]
     Active Substance: MIRTAZAPINE
     Dosage: 15 MILLIGRAM, QD (15 MILLIGRAM, 1/DAY)
     Route: 065
     Dates: start: 2016
  12. MIRTAZAPINE [Suspect]
     Active Substance: MIRTAZAPINE
     Dosage: 15 MILLIGRAM, QD (15 MILLIGRAM, 1/DAY)
     Dates: start: 2016
  13. ERENUMAB [Interacting]
     Active Substance: ERENUMAB
     Indication: Migraine
     Dosage: UNK, Q28D (EVERY 4 WEEKS)
     Dates: start: 2023
  14. ERENUMAB [Interacting]
     Active Substance: ERENUMAB
     Dosage: UNK, Q28D (EVERY 4 WEEKS)
     Route: 058
     Dates: start: 2023
  15. ERENUMAB [Interacting]
     Active Substance: ERENUMAB
     Dosage: UNK, Q28D (EVERY 4 WEEKS)
     Route: 058
     Dates: start: 2023
  16. ERENUMAB [Interacting]
     Active Substance: ERENUMAB
     Dosage: UNK, Q28D (EVERY 4 WEEKS)
     Dates: start: 2023
  17. AMITRIPTYLINE [Suspect]
     Active Substance: AMITRIPTYLINE
     Indication: Migraine prophylaxis
     Dosage: 75 MILLIGRAM, QD (75 MILLIGRAM, 1/DAY)
     Route: 065
  18. AMITRIPTYLINE [Suspect]
     Active Substance: AMITRIPTYLINE
     Dosage: 75 MILLIGRAM, QD (75 MILLIGRAM, 1/DAY)
  19. AMITRIPTYLINE [Suspect]
     Active Substance: AMITRIPTYLINE
     Dosage: 75 MILLIGRAM, QD (75 MILLIGRAM, 1/DAY)
  20. AMITRIPTYLINE [Suspect]
     Active Substance: AMITRIPTYLINE
     Dosage: 75 MILLIGRAM, QD (75 MILLIGRAM, 1/DAY)
     Route: 065
  21. AMITRIPTYLINE [Suspect]
     Active Substance: AMITRIPTYLINE
     Route: 065
  22. AMITRIPTYLINE [Suspect]
     Active Substance: AMITRIPTYLINE
  23. AMITRIPTYLINE [Suspect]
     Active Substance: AMITRIPTYLINE
  24. AMITRIPTYLINE [Suspect]
     Active Substance: AMITRIPTYLINE
     Route: 065
  25. ZOMIG [Interacting]
     Active Substance: ZOLMITRIPTAN
     Indication: Migraine
  26. ZOMIG [Interacting]
     Active Substance: ZOLMITRIPTAN
     Route: 065
  27. ZOMIG [Interacting]
     Active Substance: ZOLMITRIPTAN
     Route: 065
  28. ZOMIG [Interacting]
     Active Substance: ZOLMITRIPTAN
  29. PROPRANOLOL [Suspect]
     Active Substance: PROPRANOLOL HYDROCHLORIDE
     Indication: Migraine prophylaxis
  30. PROPRANOLOL [Suspect]
     Active Substance: PROPRANOLOL HYDROCHLORIDE
     Route: 048
  31. PROPRANOLOL [Suspect]
     Active Substance: PROPRANOLOL HYDROCHLORIDE
     Route: 048
  32. PROPRANOLOL [Suspect]
     Active Substance: PROPRANOLOL HYDROCHLORIDE
  33. TOPIRAMATE [Suspect]
     Active Substance: TOPIRAMATE
     Indication: Migraine prophylaxis
     Dosage: 25 MILLIGRAM, BID (50 MILLIGRAM, QD, 25 MILLIGRAM, 2/DAY)
  34. TOPIRAMATE [Suspect]
     Active Substance: TOPIRAMATE
     Dosage: 25 MILLIGRAM, BID (50 MILLIGRAM, QD, 25 MILLIGRAM, 2/DAY)
     Route: 048
  35. TOPIRAMATE [Suspect]
     Active Substance: TOPIRAMATE
     Dosage: 25 MILLIGRAM, BID (50 MILLIGRAM, QD, 25 MILLIGRAM, 2/DAY)
     Route: 048
  36. TOPIRAMATE [Suspect]
     Active Substance: TOPIRAMATE
     Dosage: 25 MILLIGRAM, BID (50 MILLIGRAM, QD, 25 MILLIGRAM, 2/DAY)
  37. FREMANEZUMAB [Suspect]
     Active Substance: FREMANEZUMAB
     Indication: Migraine
  38. FREMANEZUMAB [Suspect]
     Active Substance: FREMANEZUMAB
     Route: 065
  39. FREMANEZUMAB [Suspect]
     Active Substance: FREMANEZUMAB
     Route: 065
  40. FREMANEZUMAB [Suspect]
     Active Substance: FREMANEZUMAB
  41. IXPRIM [Suspect]
     Active Substance: ACETAMINOPHEN\TRAMADOL HYDROCHLORIDE
     Indication: Migraine
  42. IXPRIM [Suspect]
     Active Substance: ACETAMINOPHEN\TRAMADOL HYDROCHLORIDE
     Route: 065
  43. IXPRIM [Suspect]
     Active Substance: ACETAMINOPHEN\TRAMADOL HYDROCHLORIDE
     Route: 065
  44. IXPRIM [Suspect]
     Active Substance: ACETAMINOPHEN\TRAMADOL HYDROCHLORIDE
  45. RIMEGEPANT [Interacting]
     Active Substance: RIMEGEPANT
     Indication: Migraine
     Dosage: 75 MILLIGRAM, QD (75 MILLIGRAM, 1/DAY)
     Dates: start: 202308
  46. RIMEGEPANT [Interacting]
     Active Substance: RIMEGEPANT
     Dosage: 75 MILLIGRAM, QD (75 MILLIGRAM, 1/DAY)
     Route: 048
     Dates: start: 202308
  47. RIMEGEPANT [Interacting]
     Active Substance: RIMEGEPANT
     Dosage: 75 MILLIGRAM, QD (75 MILLIGRAM, 1/DAY)
     Route: 048
     Dates: start: 202308
  48. RIMEGEPANT [Interacting]
     Active Substance: RIMEGEPANT
     Dosage: 75 MILLIGRAM, QD (75 MILLIGRAM, 1/DAY)
     Dates: start: 202308
  49. DIHYDROERGOTAMINE [Suspect]
     Active Substance: DIHYDROERGOTAMINE
     Indication: Migraine
  50. DIHYDROERGOTAMINE [Suspect]
     Active Substance: DIHYDROERGOTAMINE
     Route: 042
  51. DIHYDROERGOTAMINE [Suspect]
     Active Substance: DIHYDROERGOTAMINE
     Route: 042
  52. DIHYDROERGOTAMINE [Suspect]
     Active Substance: DIHYDROERGOTAMINE
  53. CANDESARTAN [Suspect]
     Active Substance: CANDESARTAN
     Indication: Migraine prophylaxis
     Dosage: 16 MILLIGRAM, QD (16 MILLIGRAM, 1/DAY)
     Dates: start: 2020
  54. CANDESARTAN [Suspect]
     Active Substance: CANDESARTAN
     Dosage: 16 MILLIGRAM, QD (16 MILLIGRAM, 1/DAY)
     Route: 065
     Dates: start: 2020
  55. CANDESARTAN [Suspect]
     Active Substance: CANDESARTAN
     Dosage: 16 MILLIGRAM, QD (16 MILLIGRAM, 1/DAY)
     Route: 065
     Dates: start: 2020
  56. CANDESARTAN [Suspect]
     Active Substance: CANDESARTAN
     Dosage: 16 MILLIGRAM, QD (16 MILLIGRAM, 1/DAY)
     Dates: start: 2020
  57. BOTOX [Suspect]
     Active Substance: ONABOTULINUMTOXINA
     Indication: Migraine
     Dosage: Q3MONTHS (QUARTERLY)
     Dates: start: 2023
  58. BOTOX [Suspect]
     Active Substance: ONABOTULINUMTOXINA
     Dosage: Q3MONTHS (QUARTERLY)
     Route: 065
     Dates: start: 2023
  59. BOTOX [Suspect]
     Active Substance: ONABOTULINUMTOXINA
     Dosage: Q3MONTHS (QUARTERLY)
     Route: 065
     Dates: start: 2023
  60. BOTOX [Suspect]
     Active Substance: ONABOTULINUMTOXINA
     Dosage: Q3MONTHS (QUARTERLY)
     Dates: start: 2023

REACTIONS (6)
  - Coronary artery stenosis [Unknown]
  - Arteriospasm coronary [Unknown]
  - Unmasking of previously unidentified disease [Unknown]
  - Drug interaction [Unknown]
  - Therapeutic product effect incomplete [Unknown]
  - Off label use [Unknown]

NARRATIVE: CASE EVENT DATE: 20240101
